FAERS Safety Report 16670194 (Version 1)
Quarter: 2019Q3

REPORT INFORMATION
  Report Type: Other
  Country: BR (occurrence: BR)
  Receive Date: 20190805
  Receipt Date: 20190805
  Transmission Date: 20191004
  Serious: Yes (Hospitalization)
  Sender: FDA-Public Use
  Company Number: BR-GALDERMA-BR19033256

PATIENT
  Age: 36 Year
  Sex: Male

DRUGS (4)
  1. ALENDRONATE [Concomitant]
     Active Substance: ALENDRONATE SODIUM
     Indication: OSTEOGENESIS IMPERFECTA
     Route: 065
  2. CALCITRIOL. [Suspect]
     Active Substance: CALCITRIOL
     Indication: OSTEOGENESIS IMPERFECTA
     Route: 065
  3. CHOLECALCIFEROL [Concomitant]
     Active Substance: CHOLECALCIFEROL
     Indication: OSTEOGENESIS IMPERFECTA
     Route: 065
  4. CALCIUM CARBONATE. [Concomitant]
     Active Substance: CALCIUM CARBONATE
     Indication: OSTEOGENESIS IMPERFECTA
     Route: 065

REACTIONS (5)
  - Product use in unapproved indication [Recovered/Resolved]
  - Hypophosphatasia [Recovering/Resolving]
  - Blood alkaline phosphatase decreased [Recovering/Resolving]
  - Bone density decreased [Recovering/Resolving]
  - Chronic kidney disease [Recovering/Resolving]
